FAERS Safety Report 7683242-1 (Version None)
Quarter: 2011Q3

REPORT INFORMATION
  Report Type: 
  Country: None (occurrence: None)
  Receive Date: 20110815
  Receipt Date: 20110810
  Transmission Date: 20111222
  Serious: Yes (Other)
  Sender: FDA-Public Use
  Company Number: DE-PFIZER INC-2011184464

PATIENT
  Age: 87 Year
  Sex: Female

DRUGS (4)
  1. LYRICA [Suspect]
     Dosage: 75 MG, 2X/DAY
     Dates: start: 20110803
  2. PALLADONE [Concomitant]
     Dosage: UNK
  3. LYRICA [Suspect]
     Dosage: 150 MG, 2X/DAY
     Dates: end: 20110628
  4. MORPHINE [Concomitant]
     Dosage: 50 MG, UNK
     Route: 062
     Dates: start: 20110629

REACTIONS (4)
  - HERPES ZOSTER [None]
  - WEIGHT INCREASED [None]
  - SOMNOLENCE [None]
  - OEDEMA [None]
